FAERS Safety Report 5824213-7 (Version None)
Quarter: 2008Q3

REPORT INFORMATION
  Report Type: 
  Country: None (occurrence: None)
  Receive Date: 20080728
  Receipt Date: 20080717
  Transmission Date: 20090109
  Serious: Yes (Hospitalization)
  Sender: FDA-Public Use
  Company Number: GB-AMGEN-UK291047

PATIENT
  Sex: Female
  Weight: 73.9 kg

DRUGS (6)
  1. NEULASTA [Suspect]
     Indication: CHEMOTHERAPY
     Route: 058
     Dates: start: 20080617
  2. EPIRUBICIN [Suspect]
     Route: 042
     Dates: start: 20080519
  3. DEXAMETHASONE [Concomitant]
     Route: 042
     Dates: start: 20080519
  4. ONDANSETRON [Concomitant]
     Route: 042
     Dates: start: 20080519
  5. DEXAMETHASONE [Concomitant]
     Route: 048
     Dates: start: 20080519
  6. ONDANSETRON [Concomitant]
     Route: 048
     Dates: start: 20080519

REACTIONS (2)
  - LEUKOCYTOSIS [None]
  - THROMBOPHLEBITIS [None]
